FAERS Safety Report 7472734-6 (Version None)
Quarter: 2011Q2

REPORT INFORMATION
  Report Type: 
  Country: None (occurrence: None)
  Receive Date: 20110511
  Receipt Date: 20110429
  Transmission Date: 20111010
  Serious: Yes (Other)
  Sender: FDA-Public Use
  Company Number: AU-PFIZER INC-2011057048

PATIENT
  Age: 62 Year
  Sex: Female

DRUGS (5)
  1. LEVOTHYROXINE SODIUM [Concomitant]
     Indication: THYROID DISORDER
     Dosage: 100 UG, 1 DAILY SIX DAYS PER WEEK
  2. ATACAND [Concomitant]
     Indication: HYPERTENSION
     Dosage: 8 MG, 1X/DAY
  3. PRISTIQ [Suspect]
     Indication: DEPRESSION
     Dosage: 50 MG, 1X/DAY
     Dates: start: 20110214, end: 20110225
  4. PRAMIPEXOLE DIHYDROCHLORIDE [Concomitant]
     Indication: RESTLESS LEGS SYNDROME
     Dosage: 125 UG, 1X/DAY
  5. TERTROXIN [Concomitant]
     Indication: THYROID DISORDER
     Dosage: 20 UG, 1 DAILY FOR FOUR DAYS PER WEEK AS DIRECTED

REACTIONS (3)
  - FATIGUE [None]
  - NAUSEA [None]
  - LIVER FUNCTION TEST ABNORMAL [None]
